FAERS Safety Report 9914999 (Version 1)
Quarter: 2014Q1

REPORT INFORMATION
  Report Type: Report from Study
  Country: FR (occurrence: FR)
  Receive Date: 20140220
  Receipt Date: 20140220
  Transmission Date: 20141002
  Serious: Yes (Hospitalization, Other)
  Sender: FDA-Public Use
  Company Number: PHHY2014FR020607

PATIENT
  Age: 60 Year
  Sex: Female

DRUGS (8)
  1. MYCOPHENOLIC ACID [Suspect]
     Indication: PROPHYLAXIS AGAINST TRANSPLANT REJECTION
     Dosage: 1440 MG, QD
     Route: 048
     Dates: start: 20130802, end: 20130808
  2. MYCOPHENOLIC ACID [Suspect]
     Dosage: 720 MG, QD
     Route: 048
     Dates: start: 20130808, end: 20130908
  3. CORTANCYL [Suspect]
     Dosage: 5 MG, QD
     Dates: start: 20130807
  4. BACTRIM [Suspect]
     Indication: INFECTION PROPHYLAXIS
     Dosage: 400 MG, QD
     Dates: start: 20130803, end: 20140201
  5. ROVALCYTE [Suspect]
     Indication: INFECTION PROPHYLAXIS
     Dosage: 900 MG, QW
     Dates: start: 20130803, end: 20131115
  6. INEXIUM [Suspect]
     Indication: PROPHYLAXIS AGAINST GASTROINTESTINAL ULCER
     Dosage: 20 MG, QD
     Dates: start: 20130803, end: 20130907
  7. PROGRAF [Suspect]
     Dosage: 5 MG, QD
     Dates: start: 20130807
  8. THYMOGLOBULIN [Concomitant]
     Indication: PROPHYLAXIS AGAINST TRANSPLANT REJECTION
     Dosage: 1.25 MG/KG, QD
     Dates: start: 20130802, end: 20130809

REACTIONS (7)
  - Complications of transplanted kidney [Recovered/Resolved with Sequelae]
  - Acute pulmonary oedema [Recovered/Resolved]
  - Atrial fibrillation [Recovered/Resolved]
  - Renal tubular necrosis [Unknown]
  - Diabetes mellitus [Recovered/Resolved]
  - Anaemia [Recovering/Resolving]
  - Nephroangiosclerosis [Unknown]
